FAERS Safety Report 8984976 (Version 2)
Quarter: 2013Q1

REPORT INFORMATION
  Report Type: Spontaneous
  Country: US (occurrence: US)
  Receive Date: 20121226
  Receipt Date: 20130220
  Transmission Date: 20140127
  Serious: No
  Sender: FDA-Public Use
  Company Number: US-PFIZER INC-2012323866

PATIENT
  Age: 87 Year
  Sex: Female
  Weight: 67.12 kg

DRUGS (4)
  1. DEPO-MEDROL [Suspect]
     Indication: SPINAL PAIN
     Dosage: UNK
     Route: 008
     Dates: start: 20121114
  2. DEPO-MEDROL [Suspect]
     Indication: BACK PAIN
     Dosage: 80 MG, SINGLE
     Route: 008
     Dates: start: 20121115, end: 20121115
  3. DEPO-MEDROL [Suspect]
     Indication: PAIN IN EXTREMITY
     Dosage: 80 MG, SINGLE
     Route: 008
     Dates: start: 20121128, end: 20121128
  4. DIOVAN [Concomitant]
     Dosage: UNK

REACTIONS (5)
  - Mental disorder [Not Recovered/Not Resolved]
  - Depressed mood [Not Recovered/Not Resolved]
  - Frustration [Not Recovered/Not Resolved]
  - Confusional state [Recovering/Resolving]
  - Incorrect route of drug administration [Unknown]
